FAERS Safety Report 6405732-1 (Version None)
Quarter: 2009Q4

REPORT INFORMATION
  Report Type: 
  Country: None (occurrence: None)
  Receive Date: 20091016
  Receipt Date: 20091016
  Transmission Date: 20100525
  Serious: Yes (Life-Threatening, Hospitalization)
  Sender: FDA-Public Use
  Company Number: None

PATIENT
  Sex: Female
  Weight: 97.52 kg

DRUGS (1)
  1. NUVARING [Suspect]
     Indication: CONTRACEPTION
     Dosage: 1 RING EVERY 4 WEEKS VAG SINCC 19YRS OF AGE -2004-
     Route: 067

REACTIONS (5)
  - ANTINUCLEAR ANTIBODY POSITIVE [None]
  - APHASIA [None]
  - CEREBROVASCULAR ACCIDENT [None]
  - RED BLOOD CELL SEDIMENTATION RATE INCREASED [None]
  - SENSORY DISTURBANCE [None]
